FAERS Safety Report 8108037-6 (Version None)
Quarter: 2012Q1

REPORT INFORMATION
  Report Type: 
  Country: None (occurrence: None)
  Receive Date: 20120202
  Receipt Date: 20120127
  Transmission Date: 20120608
  Serious: Yes (Hospitalization)
  Sender: FDA-Public Use
  Company Number: FR-PFIZER INC-K201000947

PATIENT
  Age: 79 Year
  Sex: Male

DRUGS (13)
  1. ATORVASTATIN [Suspect]
     Indication: HYPERCHOLESTEROLAEMIA
     Dosage: 20 MG, 1X/DAY
     Route: 048
     Dates: end: 20100712
  2. OXYCONTIN [Suspect]
     Indication: PHANTOM PAIN
     Dosage: 40 MG, 2X/DAY
     Route: 048
     Dates: end: 20100711
  3. ALTACE [Suspect]
     Indication: LEFT VENTRICULAR FAILURE
  4. PREGABALIN [Concomitant]
     Dosage: UNK
  5. ALTACE [Suspect]
     Indication: HYPERTENSION
     Dosage: 7.5 MG, 1X/DAY
     Route: 048
  6. BENDROFLUMETHIAZIDE [Suspect]
     Indication: POLYURIA
     Dosage: 2.5 MG, 1X/DAY
     Route: 048
  7. ASPIRIN [Concomitant]
     Dosage: UNK
  8. OXYCODONE HCL [Suspect]
     Indication: BREAKTHROUGH PAIN
     Dosage: 10 MG, TID OR QID
     Route: 048
     Dates: end: 20100712
  9. METFORMIN HCL [Suspect]
     Indication: DIABETES MELLITUS
     Dosage: 500 MG, 3X/DAY
     Route: 048
  10. OXYCONTIN [Suspect]
     Dosage: UNK
     Route: 048
     Dates: start: 20100713
  11. FUROSEMIDE [Suspect]
     Indication: FLUID OVERLOAD
     Dosage: 40 MG, 1X/DAY
     Route: 048
  12. PARACETAMOL [Concomitant]
     Dosage: UNK
  13. DOXYCYCLINE [Concomitant]
     Dosage: UNK

REACTIONS (10)
  - CONFUSIONAL STATE [None]
  - LOSS OF CONSCIOUSNESS [None]
  - TOXICITY TO VARIOUS AGENTS [None]
  - BLOOD CREATINE PHOSPHOKINASE INCREASED [None]
  - RENAL IMPAIRMENT [None]
  - DEHYDRATION [None]
  - ERYTHEMA [None]
  - SOMNOLENCE [None]
  - MIOSIS [None]
  - HYPOPHAGIA [None]
